FAERS Safety Report 4381814-3 (Version None)
Quarter: 2004Q2

REPORT INFORMATION
  Report Type: 
  Country: None (occurrence: None)
  Receive Date: 20040618
  Receipt Date: 20040603
  Transmission Date: 20050107
  Serious: Yes (Death)
  Sender: FDA-Public Use
  Company Number: 2004S1001631

PATIENT
  Age: 35 Year
  Sex: Female

DRUGS (2)
  1. CLOZAPINE [Suspect]
     Dosage: 75 MG Q HS, ORAL
     Route: 048
     Dates: start: 20040301, end: 20040501
  2. CLOZAPINE [Suspect]
     Dosage: 100 MG Q HS, ORAL
     Route: 048
     Dates: start: 20040301, end: 20040501

REACTIONS (1)
  - DEATH [None]
